FAERS Safety Report 12219810 (Version 1)
Quarter: 2016Q1

REPORT INFORMATION
  Report Type: Report from Study
  Country: US (occurrence: US)
  Receive Date: 20160330
  Receipt Date: 20160330
  Transmission Date: 20160526
  Serious: Yes (Death)
  Sender: FDA-Public Use
  Company Number: PHEH2015US011948

PATIENT
  Sex: Male

DRUGS (3)
  1. AFINITOR [Suspect]
     Active Substance: EVEROLIMUS
     Indication: NASAL SINUS CANCER
     Dosage: 10 MG, UNK
     Route: 048
  2. AFINITOR [Suspect]
     Active Substance: EVEROLIMUS
     Indication: OEDEMA
  3. AFINITOR [Suspect]
     Active Substance: EVEROLIMUS
     Indication: HEAD AND NECK CANCER

REACTIONS (2)
  - Death [Fatal]
  - Off label use [Unknown]
